FAERS Safety Report 10496593 (Version 2)
Quarter: 2014Q4

REPORT INFORMATION
  Report Type: Report from Study
  Country: NL (occurrence: NL)
  Receive Date: 20141005
  Receipt Date: 20141103
  Transmission Date: 20150528
  Serious: Yes (Death)
  Sender: FDA-Public Use
  Company Number: PHHY2014NL129497

PATIENT
  Sex: Female

DRUGS (3)
  1. ACLASTA [Suspect]
     Active Substance: ZOLEDRONIC ACID
     Dosage: 5 MG, ONCE PER 52 WEEKS
     Route: 042
     Dates: start: 20121009
  2. ACLASTA [Suspect]
     Active Substance: ZOLEDRONIC ACID
     Indication: OSTEOPOROSIS
     Route: 042
     Dates: start: 2011
  3. ACLASTA [Suspect]
     Active Substance: ZOLEDRONIC ACID
     Dosage: 5 MG, ONCE PER 52 WEEKS
     Route: 042
     Dates: start: 20131009

REACTIONS (5)
  - Bacteraemia [Fatal]
  - Myocardial infarction [Fatal]
  - Euthanasia [Fatal]
  - Lung neoplasm malignant [Fatal]
  - Chronic obstructive pulmonary disease [Fatal]
